FAERS Safety Report 23915467 (Version 1)
Quarter: 2024Q2

REPORT INFORMATION
  Report Type: Report from Study
  Country: US (occurrence: US)
  Receive Date: 20240529
  Receipt Date: 20240529
  Transmission Date: 20240715
  Serious: Yes (Other)
  Sender: FDA-Public Use
  Company Number: US-UCBSA-2024025656

PATIENT
  Age: 27 Year
  Sex: Female
  Weight: 51 kg

DRUGS (2)
  1. FINTEPLA [Suspect]
     Active Substance: FENFLURAMINE
     Indication: Epilepsy
     Dosage: UNK
  2. FINTEPLA [Suspect]
     Active Substance: FENFLURAMINE
     Indication: Off label use

REACTIONS (2)
  - Tricuspid valve incompetence [Unknown]
  - Off label use [Unknown]

NARRATIVE: CASE EVENT DATE: 20240515
